FAERS Safety Report 5887313-1 (Version None)
Quarter: 2008Q3

REPORT INFORMATION
  Report Type: 
  Country: None (occurrence: None)
  Receive Date: 20080918
  Receipt Date: 20080909
  Transmission Date: 20090109
  Serious: Yes (Death, Hospitalization, Other)
  Sender: FDA-Public Use
  Company Number: GB-JNJFOC-20080902100

PATIENT
  Age: 50 Year
  Sex: Female
  Weight: 66 kg

DRUGS (10)
  1. REMICADE [Suspect]
     Route: 042
  2. REMICADE [Suspect]
     Indication: RHEUMATOID ARTHRITIS
     Route: 042
  3. PREDNISOLONE [Concomitant]
  4. CELEBREX [Concomitant]
  5. FERROUS GLUCONATE [Concomitant]
  6. HRT [Concomitant]
  7. IMODIUM [Concomitant]
  8. MIRTAZAPINE [Concomitant]
  9. MORPHINE [Concomitant]
  10. METHOTREXATE [Concomitant]

REACTIONS (3)
  - DEATH [None]
  - GASTROENTERITIS [None]
  - SYNCOPE [None]
